FAERS Safety Report 6708368-8 (Version None)
Quarter: 2010Q2

REPORT INFORMATION
  Report Type: 
  Country: None (occurrence: None)
  Receive Date: 20100503
  Receipt Date: 20090624
  Transmission Date: 20101027
  Serious: No
  Sender: FDA-Public Use
  Company Number: US-ASTRAZENECA-2009UW17164

PATIENT
  Age: 40 Year
  Sex: Female

DRUGS (1)
  1. NEXIUM [Suspect]
     Route: 048
     Dates: start: 20050101

REACTIONS (3)
  - CHEST PAIN [None]
  - GASTRITIS EROSIVE [None]
  - GROWTH RETARDATION [None]
